FAERS Safety Report 10274879 (Version 80)
Quarter: 2022Q4

REPORT INFORMATION
  Report Type: Other
  Country: CA (occurrence: None)
  Receive Date: 20140702
  Receipt Date: 20221222
  Transmission Date: 20230112
  Serious: Yes (Hospitalization, Other)
  Sender: FDA-Public Use
  Company Number: CA-ROCHE-1404692

PATIENT
  Age: 46 Year
  Sex: Male
  Weight: 103 kg

DRUGS (10)
  1. ACTEMRA [Suspect]
     Active Substance: TOCILIZUMAB
     Indication: Rheumatoid arthritis
     Route: 042
     Dates: start: 20110302, end: 20200817
  2. ACTEMRA [Suspect]
     Active Substance: TOCILIZUMAB
     Route: 042
     Dates: start: 20141118
  3. ACTEMRA [Suspect]
     Active Substance: TOCILIZUMAB
     Dosage: CLINICAL TRIAL
     Route: 042
     Dates: start: 2005, end: 2011
  4. ACTEMRA [Suspect]
     Active Substance: TOCILIZUMAB
     Route: 042
     Dates: start: 20200914, end: 2020
  5. ACTEMRA [Suspect]
     Active Substance: TOCILIZUMAB
     Route: 042
     Dates: start: 20201019
  6. METHOTREXATE [Concomitant]
     Active Substance: METHOTREXATE
     Indication: Product used for unknown indication
  7. FOLIC ACID [Concomitant]
     Active Substance: FOLIC ACID
     Indication: Product used for unknown indication
  8. NEXIUM [Concomitant]
     Active Substance: ESOMEPRAZOLE MAGNESIUM
     Indication: Product used for unknown indication
  9. PROCHLORPERAZINE [Concomitant]
     Active Substance: PROCHLORPERAZINE
     Indication: Product used for unknown indication
  10. NAPROXEN [Concomitant]
     Active Substance: NAPROXEN
     Indication: Product used for unknown indication

REACTIONS (27)
  - Rheumatoid lung [Unknown]
  - Lower respiratory tract infection [Recovering/Resolving]
  - Testicular mass [Not Recovered/Not Resolved]
  - Umbilical hernia [Not Recovered/Not Resolved]
  - Panic disorder [Unknown]
  - Pneumonia [Not Recovered/Not Resolved]
  - Haemoptysis [Unknown]
  - Cataract [Recovering/Resolving]
  - Dyspnoea [Unknown]
  - Dyspnoea [Unknown]
  - Cough [Unknown]
  - Nasopharyngitis [Not Recovered/Not Resolved]
  - Arthralgia [Not Recovered/Not Resolved]
  - Blood pressure increased [Unknown]
  - Road traffic accident [Unknown]
  - Musculoskeletal stiffness [Not Recovered/Not Resolved]
  - Gait disturbance [Not Recovered/Not Resolved]
  - Blood pressure systolic increased [Unknown]
  - Rheumatoid arthritis [Not Recovered/Not Resolved]
  - Drug ineffective [Unknown]
  - Grip strength decreased [Not Recovered/Not Resolved]
  - Heart rate increased [Unknown]
  - Oxygen saturation decreased [Unknown]
  - Hypertension [Unknown]
  - Weight increased [Recovering/Resolving]
  - Blood pressure diastolic abnormal [Unknown]
  - Weight decreased [Unknown]

NARRATIVE: CASE EVENT DATE: 20151125
